FAERS Safety Report 8935270 (Version 3)
Quarter: 2013Q2

REPORT INFORMATION
  Report Type: Report from Study
  Country: DE (occurrence: DE)
  Receive Date: 20121129
  Receipt Date: 20130614
  Transmission Date: 20140414
  Serious: Yes (Hospitalization)
  Sender: FDA-Public Use
  Company Number: DE-ABBOTT-12P-062-1011477-00

PATIENT
  Sex: Female

DRUGS (6)
  1. HUMIRA [Suspect]
     Indication: PSORIATIC ARTHROPATHY
     Route: 058
     Dates: start: 20110701, end: 20121014
  2. HUMIRA [Suspect]
     Route: 058
     Dates: start: 20130428, end: 20130519
  3. HUMIRA [Suspect]
     Route: 058
     Dates: start: 20130519
  4. NSA [Suspect]
     Indication: PRODUCT USED FOR UNKNOWN INDICATION
  5. ANALGESIC [Suspect]
     Indication: PRODUCT USED FOR UNKNOWN INDICATION
  6. LODOTRA [Concomitant]
     Indication: PRODUCT USED FOR UNKNOWN INDICATION

REACTIONS (8)
  - Periostitis [Recovered/Resolved]
  - Tendonitis [Recovered/Resolved]
  - Exostosis [Recovered/Resolved]
  - Borrelia infection [Recovered/Resolved]
  - Anosmia [Recovered/Resolved]
  - Ageusia [Recovered/Resolved]
  - Pain [Recovered/Resolved]
  - Coccydynia [Recovered/Resolved]
